FAERS Safety Report 6115774-1 (Version None)
Quarter: 2009Q1

REPORT INFORMATION
  Report Type: 
  Country: None (occurrence: None)
  Receive Date: 20090311
  Receipt Date: 20090224
  Transmission Date: 20090719
  Serious: Yes (Other)
  Sender: FDA-Public Use
  Company Number: 2009SS000014

PATIENT

DRUGS (4)
  1. MYOBLOC [Suspect]
     Indication: MUSCLE SPASTICITY
     Dosage: IM
     Route: 030
  2. PHENOL [Suspect]
     Indication: MUSCLE SPASTICITY
  3. MIDAZOLAM HCL [Concomitant]
  4. ACETAMINOPHEN [Concomitant]

REACTIONS (2)
  - CONVULSION [None]
  - VOMITING [None]
